FAERS Safety Report 18143201 (Version 1)
Quarter: 2020Q3

REPORT INFORMATION
  Report Type: Spontaneous
  Country: US (occurrence: US)
  Receive Date: 20200813
  Receipt Date: 20200813
  Transmission Date: 20201103
  Serious: Yes (Hospitalization)
  Sender: FDA-Public Use
  Company Number: US-CADILA HEALTHCARE LIMITED-US-ZYDUS-054309

PATIENT
  Age: 80 Year
  Sex: Female

DRUGS (1)
  1. BOSENTAN 62.5 MG TABLETS [Suspect]
     Active Substance: BOSENTAN
     Indication: PULMONARY ARTERIAL HYPERTENSION
     Dosage: 62.5 MILLIGRAM, QD
     Route: 048
     Dates: start: 20191004

REACTIONS (1)
  - Volvulus [Unknown]

NARRATIVE: CASE EVENT DATE: 20200606
